FAERS Safety Report 23239752 (Version 2)
Quarter: 2024Q2

REPORT INFORMATION
  Report Type: Report from Study
  Country: CA (occurrence: None)
  Receive Date: 20231129
  Receipt Date: 20240429
  Transmission Date: 20240715
  Serious: Yes (Hospitalization, Other)
  Sender: FDA-Public Use
  Company Number: CA-PFIZER INC-202300401353

PATIENT
  Sex: Male

DRUGS (9)
  1. METHOTREXATE [Suspect]
     Active Substance: METHOTREXATE
     Indication: Product used for unknown indication
  2. DICLOFENAC [Suspect]
     Active Substance: DICLOFENAC
     Indication: Product used for unknown indication
  3. HUMIRA [Concomitant]
     Active Substance: ADALIMUMAB
  4. HYDROXYCHLOROQUINE [Concomitant]
     Active Substance: HYDROXYCHLOROQUINE
  5. PANTOPRAZOLE MAGNESIUM [Concomitant]
     Active Substance: PANTOPRAZOLE MAGNESIUM
  6. PREDNISONE [Concomitant]
     Active Substance: PREDNISONE
  7. RISEDRONATE SODIUM [Concomitant]
     Active Substance: RISEDRONATE SODIUM
  8. SULFASALAZINE [Concomitant]
     Active Substance: SULFASALAZINE
  9. PLAQUENIL [Concomitant]
     Active Substance: HYDROXYCHLOROQUINE SULFATE

REACTIONS (10)
  - Affective disorder [Unknown]
  - Asthenia [Unknown]
  - Balance disorder [Unknown]
  - Dysstasia [Unknown]
  - Fall [Unknown]
  - Gait disturbance [Unknown]
  - Grip strength decreased [Unknown]
  - Joint injury [Unknown]
  - Pain [Unknown]
  - Quality of life decreased [Unknown]
